FAERS Safety Report 4415699-3 (Version None)
Quarter: 2004Q2

REPORT INFORMATION
  Report Type: 
  Country: None (occurrence: None)
  Receive Date: 20040630
  Receipt Date: 20040308
  Transmission Date: 20050107
  Serious: Yes (Hospitalization, Other)
  Sender: FDA-Public Use
  Company Number: 2004009687

PATIENT
  Age: 39 Year
  Sex: Male
  Weight: 129.2752 kg

DRUGS (8)
  1. ZOLOFT [Suspect]
     Indication: DEPRESSION
     Dosage: 100 MG (QAM), ORAL
     Route: 048
     Dates: start: 20030117
  2. BUPROPION HYDROCHLORIDE [Concomitant]
     Indication: ANORGASMIA
     Dosage: (DAILY), ORAL
     Route: 048
     Dates: start: 20030807, end: 20031216
  3. TOPIRAMATE [Suspect]
     Indication: ANORGASMIA
     Dates: start: 20031201
  4. MORPHINE SULFATE [Concomitant]
  5. VERAPAMIL [Concomitant]
  6. BENAZEPRIL HCL [Concomitant]
  7. CETIRIZINE HCL [Concomitant]
  8. MOXIFLOXACIN HCL [Concomitant]

REACTIONS (5)
  - ANORGASMIA [None]
  - DEPRESSION [None]
  - GRAND MAL CONVULSION [None]
  - NASOPHARYNGITIS [None]
  - PHARYNGOLARYNGEAL PAIN [None]
